FAERS Safety Report 19785523 (Version 1)
Quarter: 2021Q3

REPORT INFORMATION
  Report Type: Spontaneous
  Country: CN (occurrence: CN)
  Receive Date: 20210903
  Receipt Date: 20210903
  Transmission Date: 20211014
  Serious: Yes (Other)
  Sender: FDA-Public Use
  Company Number: CN-009507513-2108CHN007406

PATIENT
  Age: 96 Year
  Sex: Male
  Weight: 60 kg

DRUGS (2)
  1. SODIUM CHLORIDE. [Concomitant]
     Active Substance: SODIUM CHLORIDE
     Indication: MEDICATION DILUTION
     Dosage: 100 MILLILITER, Q12H (ALSO REPORTED AS TWICE DAILY); ROUTE ALSO REPORTED AS INTRAVENOUS
     Route: 041
     Dates: start: 20210811, end: 20210814
  2. TIENAM [Suspect]
     Active Substance: CILASTATIN SODIUM\IMIPENEM
     Indication: INFECTION
     Dosage: 0.5 GRAM (DOSE ALSO REPORTED AS 1 GRAM), Q12H (ALSO REPORTED AS TWICE DAILY); ROUTE ALSO REPORTED AS
     Route: 041
     Dates: start: 20210811, end: 20210814

REACTIONS (1)
  - Epilepsy [Recovering/Resolving]

NARRATIVE: CASE EVENT DATE: 20210814
